FAERS Safety Report 25018062 (Version 1)
Quarter: 2025Q1

REPORT INFORMATION
  Report Type: Report from Study
  Country: US (occurrence: US)
  Receive Date: 20250227
  Receipt Date: 20250227
  Transmission Date: 20250408
  Serious: Yes (Death, Other)
  Sender: TAKEDA
  Company Number: US-TAKEDA-2023TUS043914

PATIENT
  Sex: Male

DRUGS (2)
  1. MARIBAVIR [Suspect]
     Active Substance: MARIBAVIR
     Indication: Post procedural complication
     Dosage: 400 MILLIGRAM, BID
     Dates: start: 20221003, end: 20250210
  2. MARIBAVIR [Suspect]
     Active Substance: MARIBAVIR
     Indication: Cytomegalovirus infection

REACTIONS (2)
  - Death [Fatal]
  - Cytomegalovirus test positive [Unknown]
